FAERS Safety Report 17826504 (Version 1)
Quarter: 2020Q2

REPORT INFORMATION
  Report Type: Spontaneous
  Country: US (occurrence: US)
  Receive Date: 20200526
  Receipt Date: 20200526
  Transmission Date: 20200714
  Serious: Yes (Other)
  Sender: FDA-Public Use
  Company Number: US-OTSUKA-2020_012705

PATIENT
  Sex: Female

DRUGS (2)
  1. NUEDEXTA [Suspect]
     Active Substance: DEXTROMETHORPHAN HYDROBROMIDE\QUINIDINE SULFATE
     Indication: PRODUCT USED FOR UNKNOWN INDICATION
     Dosage: UNK
     Route: 065
     Dates: start: 2018
  2. LIDOCAINE. [Concomitant]
     Active Substance: LIDOCAINE
     Indication: ORAL INFECTION
     Dosage: UNK
     Route: 065

REACTIONS (4)
  - Joint dislocation [Not Recovered/Not Resolved]
  - Jaw disorder [Not Recovered/Not Resolved]
  - Crying [Unknown]
  - Product dose omission [Unknown]

NARRATIVE: CASE EVENT DATE: 2019
